FAERS Safety Report 10076926 (Version 2)
Quarter: 2014Q2

REPORT INFORMATION
  Report Type: Spontaneous
  Country: CA (occurrence: CA)
  Receive Date: 20140414
  Receipt Date: 20140414
  Transmission Date: 20141212
  Serious: Yes (Other)
  Sender: FDA-Public Use
  Company Number: ALCN2007CA003121

PATIENT
  Age: 86 Year
  Sex: Female

DRUGS (1)
  1. FLUORESCEIN SODIUM [Suspect]
     Indication: ANGIOGRAM
     Route: 040

REACTIONS (3)
  - Urticaria [Recovered/Resolved]
  - Skin test positive [Recovered/Resolved]
  - Paraesthesia [Recovered/Resolved]
